FAERS Safety Report 8885428 (Version 1)
Quarter: 2012Q4

REPORT INFORMATION
  Report Type: Report from Study
  Country: DE (occurrence: DE)
  Receive Date: 20121101
  Receipt Date: 20121101
  Transmission Date: 20130627
  Serious: Yes (Death, Hospitalization)
  Sender: FDA-Public Use
  Company Number: DE-ROCHE-1150724

PATIENT
  Sex: Male
  Weight: 88 kg

DRUGS (1)
  1. METHOXY POLYETHYLENE GLYCOL-EPOETIN BETA [Suspect]
     Indication: NEPHROGENIC ANAEMIA
     Route: 058

REACTIONS (5)
  - General physical health deterioration [Fatal]
  - Multi-organ failure [Fatal]
  - Sepsis [Fatal]
  - Aortic aneurysm rupture [Unknown]
  - Psoas abscess [Unknown]
